FAERS Safety Report 8592494 (Version 2)
Quarter: 2012Q4

REPORT INFORMATION
  Report Type: 
  Country: US (occurrence: US)
  Receive Date: 20120601
  Receipt Date: 20121026
  Transmission Date: 20130627
  Serious: Yes (Hospitalization)
  Sender: FDA-Public Use
  Company Number: US-ASTRAZENECA-2011SE75376

PATIENT
  Age: 52 Year
  Sex: Female

DRUGS (4)
  1. ATACAND HCT [Suspect]
     Route: 048
  2. NEXIUM [Suspect]
     Route: 048
  3. PRILOSEC OTC [Suspect]
     Route: 048
  4. ABILIFY [Concomitant]

REACTIONS (5)
  - Depression [Unknown]
  - Oedema peripheral [Unknown]
  - Drug effect incomplete [Unknown]
  - Intentional drug misuse [Unknown]
  - Drug dose omission [Unknown]
